FAERS Safety Report 23197912 (Version 1)
Quarter: 2023Q4

REPORT INFORMATION
  Report Type: Spontaneous
  Country: US (occurrence: None)
  Receive Date: 20231117
  Receipt Date: 20231117
  Transmission Date: 20240109
  Serious: Yes (Other)
  Sender: FDA-Public Use
  Company Number: None

PATIENT
  Age: 51 Year
  Sex: Male

DRUGS (1)
  1. MAVYRET [Suspect]
     Active Substance: GLECAPREVIR\PIBRENTASVIR
     Dosage: OTHER QUANTITY : 300-120MG;?FREQUENCY : DAILY;?
     Dates: start: 20231023

REACTIONS (3)
  - Fatigue [None]
  - Pneumonia [None]
  - Infection [None]

NARRATIVE: CASE EVENT DATE: 20231115
